FAERS Safety Report 10231027 (Version 1)
Quarter: 2014Q2

REPORT INFORMATION
  Report Type: Spontaneous
  Country: US (occurrence: US)
  Receive Date: 20140611
  Receipt Date: 20140611
  Transmission Date: 20141212
  Serious: Yes (Other)
  Sender: FDA-Public Use
  Company Number: US-GLAXOSMITHKLINE-A1075926A

PATIENT
  Age: 70 Year
  Sex: Female

DRUGS (1)
  1. ARZERRA [Suspect]
     Indication: WALDENSTROM^S MACROGLOBULINAEMIA
     Dosage: 300MG UNKNOWN
     Route: 042
     Dates: start: 20140604

REACTIONS (3)
  - Laryngeal oedema [Not Recovered/Not Resolved]
  - Face oedema [Not Recovered/Not Resolved]
  - Eye oedema [Not Recovered/Not Resolved]
